FAERS Safety Report 4991739-8 (Version None)
Quarter: 2006Q2

REPORT INFORMATION
  Report Type: 
  Country: None (occurrence: None)
  Receive Date: 20060502
  Receipt Date: 20060418
  Transmission Date: 20061013
  Serious: Yes (Other)
  Sender: FDA-Public Use
  Company Number: 2006MP000595

PATIENT
  Age: 23 Year
  Sex: Female

DRUGS (2)
  1. SALAGEN [Suspect]
     Indication: SJOGREN'S SYNDROME
     Dosage: PO
     Route: 048
  2. NEXIUM [Concomitant]

REACTIONS (4)
  - ANXIETY [None]
  - ARRHYTHMIA [None]
  - DEPRESSED LEVEL OF CONSCIOUSNESS [None]
  - PALPITATIONS [None]
